FAERS Safety Report 15972548 (Version 1)
Quarter: 2019Q1

REPORT INFORMATION
  Report Type: Spontaneous
  Country: US (occurrence: US)
  Receive Date: 20190216
  Receipt Date: 20190216
  Transmission Date: 20190418
  Serious: No
  Sender: FDA-Public Use
  Company Number: US-009507513-1902USA004724

PATIENT

DRUGS (1)
  1. VYTORIN [Suspect]
     Active Substance: EZETIMIBE\SIMVASTATIN

REACTIONS (1)
  - Drug effect increased [Unknown]
